FAERS Safety Report 4809316-8 (Version None)
Quarter: 2005Q4

REPORT INFORMATION
  Report Type: 
  Country: None (occurrence: None)
  Receive Date: 20051021
  Receipt Date: 20020710
  Transmission Date: 20060501
  Serious: No
  Sender: FDA-Public Use
  Company Number: USA020718219

PATIENT
  Age: 13 Year
  Sex: Female

DRUGS (2)
  1. ZYPREXA [Suspect]
  2. SEROQUEL [Concomitant]

REACTIONS (1)
  - WHITE BLOOD CELL COUNT DECREASED [None]
